FAERS Safety Report 8609335 (Version 4)
Quarter: 2014Q2

REPORT INFORMATION
  Report Type: Spontaneous
  Country: US (occurrence: US)
  Receive Date: 20120612
  Receipt Date: 20140527
  Transmission Date: 20141212
  Serious: No
  Sender: FDA-Public Use
  Company Number: US-ASTRAZENECA-2012SE36065

PATIENT
  Age: 764 Month
  Sex: Female

DRUGS (17)
  1. NEXIUM [Suspect]
     Indication: HELICOBACTER INFECTION
     Route: 048
  2. NEXIUM [Suspect]
     Indication: HELICOBACTER INFECTION
     Route: 048
     Dates: start: 20050721
  3. NEXIUM [Suspect]
     Indication: HELICOBACTER INFECTION
     Route: 048
     Dates: start: 20081215
  4. NEXIUM [Suspect]
     Indication: HELICOBACTER INFECTION
     Route: 048
     Dates: start: 20100128
  5. TUMS [Concomitant]
  6. ROLAIDS [Concomitant]
  7. ELAVIL [Concomitant]
     Dates: start: 20080924
  8. ELAVIL [Concomitant]
     Dates: start: 20091105
  9. SINGULAIR [Concomitant]
     Dates: start: 20080924
  10. CRANBERRY PILLS [Concomitant]
     Dates: start: 20090218
  11. FLEXERIL [Concomitant]
     Dates: start: 20090508
  12. MOBIC [Concomitant]
     Dates: start: 20090508
  13. ASA [Concomitant]
     Dates: start: 20091105
  14. NASONEX [Concomitant]
     Dates: start: 20080924
  15. ALLEGRA [Concomitant]
  16. LEXAPRO [Concomitant]
  17. TETRACYCLINE [Concomitant]

REACTIONS (4)
  - Osteoporosis [Unknown]
  - Multiple fractures [Unknown]
  - Osteopenia [Unknown]
  - Osteoarthritis [Unknown]
